FAERS Safety Report 9800848 (Version 3)
Quarter: 2014Q1

REPORT INFORMATION
  Report Type: Spontaneous
  Country: US (occurrence: US)
  Receive Date: 20140107
  Receipt Date: 20140314
  Transmission Date: 20141002
  Serious: Yes (Death, Hospitalization, Other)
  Sender: FDA-Public Use
  Company Number: US-ASTRAZENECA-2013SE67466

PATIENT
  Age: 83 Year
  Sex: Male
  Weight: 65.8 kg

DRUGS (14)
  1. NEXIUM [Suspect]
     Indication: GASTROOESOPHAGEAL REFLUX DISEASE
     Route: 048
     Dates: start: 2008, end: 20131125
  2. NEXIUM [Suspect]
     Indication: GASTROOESOPHAGEAL REFLUX DISEASE
     Route: 048
     Dates: start: 2008, end: 20131125
  3. NEXIUM [Suspect]
     Indication: GASTROOESOPHAGEAL REFLUX DISEASE
     Route: 048
     Dates: start: 20131201, end: 2014
  4. NEXIUM [Suspect]
     Indication: GASTROOESOPHAGEAL REFLUX DISEASE
     Route: 048
     Dates: start: 20131201, end: 2014
  5. PRILOSEC [Suspect]
     Indication: GASTROOESOPHAGEAL REFLUX DISEASE
     Route: 048
  6. PRILOSEC [Suspect]
     Indication: GASTROOESOPHAGEAL REFLUX DISEASE
     Route: 048
  7. BLOOD PRESSURE MEDICATION [Concomitant]
  8. LASIX [Concomitant]
     Indication: OEDEMA
     Route: 048
  9. CARDIZEM [Concomitant]
     Indication: ATRIAL FIBRILLATION
     Route: 048
  10. LOPRESSOR [Concomitant]
     Indication: ATRIAL FIBRILLATION
     Route: 048
     Dates: start: 2012
  11. XANAX [Concomitant]
     Indication: SLEEP DISORDER
     Route: 048
     Dates: start: 2010
  12. POTASSIUM [Concomitant]
     Indication: MINERAL SUPPLEMENTATION
     Route: 048
  13. RISPERDAL [Concomitant]
     Indication: DEMENTIA
     Route: 048
     Dates: start: 2004
  14. RISPERDAL [Concomitant]
     Indication: PSYCHOTIC BEHAVIOUR
     Route: 048
     Dates: start: 2004

REACTIONS (10)
  - Pneumonia [Fatal]
  - Dysphagia [Not Recovered/Not Resolved]
  - Pneumonia aspiration [Recovered/Resolved]
  - Cough [Unknown]
  - Atrial fibrillation [Recovered/Resolved]
  - Cardiac failure congestive [Not Recovered/Not Resolved]
  - Adverse event [Unknown]
  - Vomiting projectile [Recovered/Resolved]
  - Chest pain [Recovered/Resolved]
  - Drug dose omission [Recovered/Resolved]
